FAERS Safety Report 7816451-9 (Version None)
Quarter: 2011Q4

REPORT INFORMATION
  Report Type: 
  Country: None (occurrence: None)
  Receive Date: 20111017
  Receipt Date: 20111004
  Transmission Date: 20120403
  Serious: Yes (Other)
  Sender: FDA-Public Use
  Company Number: PT-JNJFOC-20111002100

PATIENT
  Age: 63 Year
  Sex: Male
  Weight: 84 kg

DRUGS (4)
  1. METICORTEN [Concomitant]
     Route: 065
  2. REMICADE [Suspect]
     Indication: COLITIS ULCERATIVE
     Route: 042
     Dates: start: 20110919
  3. REMICADE [Suspect]
     Route: 042
     Dates: start: 20110701
  4. REMICADE [Suspect]
     Route: 042
     Dates: start: 20080101

REACTIONS (4)
  - PALLOR [None]
  - INFUSION RELATED REACTION [None]
  - TREMOR [None]
  - FEELING COLD [None]
